FAERS Safety Report 8904051 (Version 1)
Quarter: 2012Q4

REPORT INFORMATION
  Report Type: 
  Country: US (occurrence: US)
  Receive Date: 20121112
  Receipt Date: 20121112
  Transmission Date: 20130627
  Serious: No
  Sender: FDA-Public Use
  Company Number: US-BAYER-2012-118136

PATIENT
  Age: 51 Year
  Sex: Male

DRUGS (11)
  1. ALEVE CAPLET/TABLET,MIDOL EXTENDED RELIEF CAPLET [Suspect]
  2. ASPIRIN [Concomitant]
     Dosage: 1 DF, QD
  3. BENICAR [Concomitant]
     Dosage: 1 DF, QD
  4. PROTONIX [Concomitant]
     Dosage: 1 DF, QD
     Route: 048
  5. DICLOFENAC POTASSIUM [Concomitant]
     Dosage: 1 DF, BID on an empty stomach
  6. CLONAZEPAM [Concomitant]
     Dosage: 1 DF, QD
  7. VIAGRA [Concomitant]
     Dosage: 1/2 tablet QD PRN
     Route: 048
  8. PLAVIX [Concomitant]
     Dosage: 1 DF, QD
  9. LOPRESSOR [Concomitant]
     Dosage: 1 DF, BID
  10. LAMOTRIGINE [Concomitant]
     Dosage: 1 DF, BID
  11. ADDERALL [Concomitant]
     Dosage: 1 DF, BID

REACTIONS (1)
  - Drug hypersensitivity [None]
